FAERS Safety Report 4324929-8 (Version None)
Quarter: 2004Q1

REPORT INFORMATION
  Report Type: 
  Country: None (occurrence: None)
  Receive Date: 20040323
  Receipt Date: 20040309
  Transmission Date: 20041129
  Serious: Yes (Death, Life-Threatening, Other)
  Sender: FDA-Public Use
  Company Number: 2004016423

PATIENT
  Sex: Female
  Weight: 47 kg

DRUGS (9)
  1. VFEND [Suspect]
     Indication: PYREXIA
     Dosage: 400 MG (DAILY), UNKNOWN
     Dates: start: 20040203, end: 20040206
  2. ANTINEOPLASTIC AGENTS [Suspect]
     Indication: MULTIPLE MYELOMA
     Dosage: 3.5 MG (UNKNOWN), INTRAVENOUS
     Route: 042
     Dates: start: 20040130, end: 20040206
  3. PAROXETINE HCL [Suspect]
     Indication: DEPRESSION
     Dosage: 20 MG (UNKNOWN), ORAL
     Route: 048
     Dates: start: 19990101
  4. ESOMEPRAZOLE (ESOMEPRAZOLE) [Suspect]
     Indication: GASTRIC DISORDER
     Dosage: 40 MG (UNKNOWN), ORAL
     Route: 048
     Dates: start: 20040122
  5. METOPROLOL SUCCINATE [Suspect]
     Indication: HYPERTENSION
     Dosage: 100 MG (UNKNOWN), ORAL
     Route: 048
     Dates: end: 20040206
  6. VALTREX (ISOPROPAMIDE IODIDE, DIAZEPAM) [Concomitant]
  7. ERYTHROPOIETIN HUMAN (ERYTHROPOIETIN HUMAN) [Concomitant]
  8. ALLOPURINOL [Concomitant]
  9. DOMPERIDONE (DOMPERIDONE) [Concomitant]

REACTIONS (21)
  - ALANINE AMINOTRANSFERASE INCREASED [None]
  - ANAEMIA [None]
  - ASPARTATE AMINOTRANSFERASE INCREASED [None]
  - BLOOD ELECTROLYTES ABNORMAL [None]
  - C-REACTIVE PROTEIN INCREASED [None]
  - COMA [None]
  - DISSEMINATED INTRAVASCULAR COAGULATION [None]
  - DRUG INTERACTION [None]
  - GAMMA-GLUTAMYLTRANSFERASE INCREASED [None]
  - HYPOTENSION [None]
  - LIVER FUNCTION TEST ABNORMAL [None]
  - LUNG DISORDER [None]
  - METABOLIC ACIDOSIS [None]
  - OVERDOSE [None]
  - PLEURAL DISORDER [None]
  - PYREXIA [None]
  - RENAL FAILURE [None]
  - SOMNOLENCE [None]
  - THROMBOCYTOPENIA [None]
  - TREMOR [None]
  - VENTRICULAR FIBRILLATION [None]
